FAERS Safety Report 5067942-8 (Version None)
Quarter: 2006Q3

REPORT INFORMATION
  Report Type: 
  Country: None (occurrence: None)
  Receive Date: 20060710
  Receipt Date: 20060127
  Transmission Date: 20061208
  Serious: Yes (Hospitalization)
  Sender: FDA-Public Use
  Company Number: US-JNJFOC-20060105952

PATIENT
  Sex: Female

DRUGS (1)
  1. MOTRIN IB [Suspect]
     Indication: ABDOMINAL PAIN UPPER
     Dosage: AS NEEDED
     Dates: start: 19910101

REACTIONS (1)
  - GASTRITIS HAEMORRHAGIC [None]
